FAERS Safety Report 10045277 (Version 1)
Quarter: 2014Q1

REPORT INFORMATION
  Report Type: Spontaneous
  Country: US (occurrence: US)
  Receive Date: 20140328
  Receipt Date: 20140328
  Transmission Date: 20141002
  Serious: Yes (Other)
  Sender: FDA-Public Use
  Company Number: US-JHP PHARMACEUTICALS, LLC-JHP201300497

PATIENT
  Age: 11 Year
  Sex: Male
  Weight: 55 kg

DRUGS (5)
  1. KETALAR [Suspect]
     Indication: ANAESTHESIA PROCEDURE
     Dosage: 1.5 MG/KG, SINGLE
     Route: 042
     Dates: start: 20130728, end: 20130728
  2. KETALAR [Suspect]
     Dosage: 0.5 MG/KG, SINGLE
     Route: 042
     Dates: start: 20130728, end: 20130728
  3. KETALAR [Suspect]
     Dosage: 0.5 MG/KG, SINGLE
     Route: 042
     Dates: start: 20130728, end: 20130728
  4. KETALAR [Suspect]
     Dosage: 0.5 MG/KG, SINGLE
     Route: 042
     Dates: start: 20130728, end: 20130728
  5. KETALAR [Suspect]
     Dosage: 0.5 MG/KG, SINGLE
     Route: 042
     Dates: start: 20130728, end: 20130728

REACTIONS (2)
  - Drug ineffective [Recovered/Resolved]
  - Off label use [Recovered/Resolved]
